FAERS Safety Report 20086326 (Version 1)
Quarter: 2021Q4

REPORT INFORMATION
  Report Type: Spontaneous
  Country: US (occurrence: US)
  Receive Date: 20211118
  Receipt Date: 20211118
  Transmission Date: 20220303
  Serious: Yes (Other)
  Sender: FDA-Public Use
  Company Number: US-NOVOPROD-855310

PATIENT
  Age: 15 Year
  Sex: Male
  Weight: 65 kg

DRUGS (2)
  1. NORDITROPIN [Suspect]
     Active Substance: SOMATROPIN
     Indication: Growth hormone deficiency
     Dosage: 1.9 MG QD
     Route: 058
     Dates: start: 202008, end: 202109
  2. NORDITROPIN [Suspect]
     Active Substance: SOMATROPIN
     Dosage: 1.9 MG, QD
     Route: 058
     Dates: start: 202109

REACTIONS (2)
  - Fall [Recovered/Resolved]
  - Epiphysiolysis [Recovered/Resolved]

NARRATIVE: CASE EVENT DATE: 20210921
